FAERS Safety Report 21663391 (Version 2)
Quarter: 2022Q4

REPORT INFORMATION
  Report Type: Spontaneous
  Country: JP (occurrence: JP)
  Receive Date: 20221130
  Receipt Date: 20221228
  Transmission Date: 20230112
  Serious: Yes (Other)
  Sender: FDA-Public Use
  Company Number: JP-BAYER-2022A159451

PATIENT
  Age: 39 Year
  Sex: Female
  Weight: 44.2 kg

DRUGS (2)
  1. BETAFERON [Suspect]
     Active Substance: INTERFERON BETA-1B
     Indication: Multiple sclerosis
     Dosage: DAILY DOSE 9.6 MILLION IU
     Route: 058
     Dates: start: 200607, end: 201109
  2. BETAFERON [Suspect]
     Active Substance: INTERFERON BETA-1B
     Indication: Multiple sclerosis
     Dosage: UNK
     Route: 058
     Dates: start: 20140903, end: 202112

REACTIONS (2)
  - IgA nephropathy [None]
  - Nephrotic syndrome [Recovered/Resolved]

NARRATIVE: CASE EVENT DATE: 20150722
